FAERS Safety Report 14015809 (Version 2)
Quarter: 2019Q2

REPORT INFORMATION
  Report Type: Spontaneous
  Country: CA (occurrence: CA)
  Receive Date: 20170927
  Receipt Date: 20190418
  Transmission Date: 20190711
  Serious: Yes (Other)
  Sender: FDA-Public Use
  Company Number: CA-PFIZER INC-2017412816

PATIENT
  Age: 37 Year
  Sex: Female

DRUGS (2)
  1. PREDNISONE. [Suspect]
     Active Substance: PREDNISONE
     Indication: COLITIS ULCERATIVE
     Dosage: UNK
  2. SOLU-CORTEF [Suspect]
     Active Substance: HYDROCORTISONE SODIUM SUCCINATE
     Indication: COLITIS ULCERATIVE
     Dosage: UNK

REACTIONS (4)
  - Liver injury [Unknown]
  - Drug ineffective [Unknown]
  - Tuberculosis [Unknown]
  - Oedema [Unknown]
